FAERS Safety Report 4611023-1 (Version None)
Quarter: 2005Q1

REPORT INFORMATION
  Report Type: 
  Country: None (occurrence: None)
  Receive Date: 20050316
  Receipt Date: 20050316
  Transmission Date: 20050727
  Serious: Yes (Hospitalization)
  Sender: FDA-Public Use
  Company Number: None

PATIENT
  Age: 84 Year
  Sex: Male
  Weight: 73 kg

DRUGS (13)
  1. WARFARIN [Suspect]
     Indication: PROPHYLAXIS
     Dosage: VARIOUS, VARIOUS, ORAL
     Route: 048
  2. METOPROLOL TARTRATE [Concomitant]
  3. OMEPRAZOLE [Concomitant]
  4. AMLODIPINE BESYLATE [Concomitant]
  5. AZITHROMYCIN [Concomitant]
  6. ASPIRIN [Concomitant]
  7. PREDNISONE [Concomitant]
  8. THIAMINE HCL [Concomitant]
  9. COUMADIN [Concomitant]
  10. OXYBUTYNIN CHLORIDE [Concomitant]
  11. FOLIC ACID [Concomitant]
  12. TRIAMTERENE AND HYDROCHLOROTHIAZIDE [Concomitant]
  13. RANITIDINE HCL [Concomitant]

REACTIONS (1)
  - INTERNATIONAL NORMALISED RATIO INCREASED [None]
